FAERS Safety Report 5152546-9 (Version None)
Quarter: 2006Q4

REPORT INFORMATION
  Report Type: 
  Country: None (occurrence: None)
  Receive Date: 20061109
  Receipt Date: 20061031
  Transmission Date: 20070319
  Serious: Yes (Death)
  Sender: FDA-Public Use
  Company Number: GXKR2006CH06949

PATIENT
  Age: 24 Year
  Sex: Male

DRUGS (3)
  1. PROPOFOL [Suspect]
     Indication: SEDATION
     Dosage: 2.6 MG/KG, QH, INTRAVENOUS
     Route: 042
  2. METHYLPREDNISOLONE [Suspect]
     Dosage: INTRAVENOUS
     Route: 042
  3. EPINEPHRINE [Suspect]

REACTIONS (10)
  - ACUTE RESPIRATORY DISTRESS SYNDROME [None]
  - ASPIRATION [None]
  - BRADYCARDIA [None]
  - BRAIN OEDEMA [None]
  - CARDIAC FAILURE [None]
  - HYPERKALAEMIA [None]
  - INFLAMMATION [None]
  - PROPOFOL INFUSION SYNDROME [None]
  - RENAL FAILURE [None]
  - RHABDOMYOLYSIS [None]
